FAERS Safety Report 19324806 (Version 2)
Quarter: 2021Q4

REPORT INFORMATION
  Report Type: Spontaneous
  Country: US (occurrence: US)
  Receive Date: 20210528
  Receipt Date: 20211229
  Transmission Date: 20220303
  Serious: Yes (Other)
  Sender: FDA-Public Use
  Company Number: US-PURDUE-USA-2020-0220394

PATIENT
  Sex: Female

DRUGS (6)
  1. OXYCONTIN [Suspect]
     Active Substance: OXYCODONE HYDROCHLORIDE
     Indication: Pain management
     Dosage: 30 MG
     Route: 048
  2. OXYCONTIN [Suspect]
     Active Substance: OXYCODONE HYDROCHLORIDE
     Dosage: 40 MG, BID
     Route: 048
  3. OXYCODONE HYDROCHLORIDE [Suspect]
     Active Substance: OXYCODONE HYDROCHLORIDE
     Indication: Pain management
     Dosage: 40 MG, BID
     Route: 048
  4. OXYCODONE HYDROCHLORIDE [Suspect]
     Active Substance: OXYCODONE HYDROCHLORIDE
     Indication: Pain management
     Dosage: 40 MG
     Route: 048
  5. OXYCODONE HYDROCHLORIDE [Suspect]
     Active Substance: OXYCODONE HYDROCHLORIDE
     Dosage: 30 MG, Q6H PRN
     Route: 048
  6. ACETAMINOPHEN\OXYCODONE HYDROCHLORIDE [Suspect]
     Active Substance: ACETAMINOPHEN\OXYCODONE HYDROCHLORIDE
     Indication: Pain management
     Dosage: UNKNOWN
     Route: 048

REACTIONS (5)
  - Drug dependence [Not Recovered/Not Resolved]
  - General physical health deterioration [Unknown]
  - Mental disorder [Unknown]
  - Loss of personal independence in daily activities [Unknown]
  - Depression [Unknown]
